FAERS Safety Report 4386566-9 (Version None)
Quarter: 2004Q2

REPORT INFORMATION
  Report Type: 
  Country: None (occurrence: None)
  Receive Date: 20040623
  Receipt Date: 20040609
  Transmission Date: 20050107
  Serious: Yes (Hospitalization, Congenital Anomaly)
  Sender: FDA-Public Use
  Company Number: FR-2004-026838

PATIENT
  Sex: Male
  Weight: 3.1 kg

DRUGS (1)
  1. JASMINE (DROSPIRENONE, ETHINYLESTRADIOL) FILM TABLET [Suspect]
     Dosage: 1 TAB(S, 21D/28D, TRANSPLACENTAL
     Route: 064
     Dates: start: 20030830, end: 20030915

REACTIONS (2)
  - DRUG EXPOSURE DURING PREGNANCY [None]
  - TALIPES [None]
